FAERS Safety Report 5309395-8 (Version None)
Quarter: 2007Q2

REPORT INFORMATION
  Report Type: 
  Country: None (occurrence: None)
  Receive Date: 20070424
  Receipt Date: 20070424
  Transmission Date: 20071010
  Serious: Yes (Other)
  Sender: FDA-Public Use
  Company Number: None

PATIENT
  Age: 36 Year
  Sex: Female
  Weight: 56.6996 kg

DRUGS (1)
  1. CIPRO [Suspect]
     Indication: EAR INFECTION
     Dosage: 1 PILL -500 MG- 2 TIMES DAY PO
     Route: 048
     Dates: start: 20070407, end: 20070413

REACTIONS (1)
  - HEART RATE IRREGULAR [None]
